FAERS Safety Report 5502428-5 (Version None)
Quarter: 2007Q4

REPORT INFORMATION
  Report Type: 
  Country: None (occurrence: None)
  Receive Date: 20071030
  Receipt Date: 20071024
  Transmission Date: 20080405
  Serious: Yes (Hospitalization)
  Sender: FDA-Public Use
  Company Number: US-MERCK-0701USA00969

PATIENT
  Age: 61 Year
  Sex: Male
  Weight: 89 kg

DRUGS (5)
  1. FOSAMAX [Suspect]
     Route: 048
     Dates: start: 20030101, end: 20040101
  2. CELEBREX [Concomitant]
     Indication: OSTEOARTHRITIS
     Route: 065
     Dates: start: 19920101
  3. LISINOPRIL [Concomitant]
     Indication: HYPERTENSION
     Route: 065
     Dates: start: 19950101
  4. VALTREX [Concomitant]
     Indication: HERPES ZOSTER
     Route: 065
     Dates: start: 20040301, end: 20040901
  5. PREDNISONE [Concomitant]
     Indication: PAROPHTHALMIA
     Route: 065
     Dates: start: 20040101, end: 20041101

REACTIONS (17)
  - APHTHOUS STOMATITIS [None]
  - BEHCET'S SYNDROME [None]
  - CONTUSION [None]
  - EYE DISORDER [None]
  - GOUTY ARTHRITIS [None]
  - HERPES ZOSTER [None]
  - MYOSITIS [None]
  - OEDEMA PERIPHERAL [None]
  - ORAL HERPES [None]
  - OSTEOMYELITIS [None]
  - OSTEONECROSIS [None]
  - PNEUMONIA [None]
  - PNEUMOTHORAX [None]
  - SKIN ULCER [None]
  - TINNITUS [None]
  - TRANSIENT ISCHAEMIC ATTACK [None]
  - WEIGHT DECREASED [None]
